FAERS Safety Report 24034975 (Version 1)
Quarter: 2024Q3

REPORT INFORMATION
  Report Type: Spontaneous
  Country: CA (occurrence: CA)
  Receive Date: 20240701
  Receipt Date: 20240701
  Transmission Date: 20241016
  Serious: Yes (Other)
  Sender: SANDOZ
  Company Number: CA-SANDOZ-SDZ2024CA061612

PATIENT
  Sex: Male
  Weight: 83.9 kg

DRUGS (1)
  1. HYRIMOZ [Suspect]
     Active Substance: ADALIMUMAB-ADAZ
     Indication: Crohn^s disease
     Dosage: 40 MG ONCE A WEEK
     Route: 058
     Dates: start: 20210929

REACTIONS (2)
  - Diarrhoea [Unknown]
  - Off label use [Unknown]
